FAERS Safety Report 9921832 (Version 1)
Quarter: 2014Q1

REPORT INFORMATION
  Report Type: Report from Study
  Country: US (occurrence: US)
  Receive Date: 20140225
  Receipt Date: 20140225
  Transmission Date: 20141002
  Serious: Yes (Hospitalization)
  Sender: FDA-Public Use
  Company Number: US-SA-2014SA022087

PATIENT
  Age: 67 Year
  Sex: Male
  Weight: 69.4 kg

DRUGS (19)
  1. JEVTANA [Suspect]
     Indication: PROSTATE CANCER
     Route: 042
     Dates: start: 20130517, end: 20130517
  2. JEVTANA [Suspect]
     Indication: PROSTATE CANCER
     Route: 042
     Dates: start: 20130821, end: 20130821
  3. JEVTANA [Suspect]
     Indication: PROSTATE CANCER
     Route: 042
     Dates: start: 20130819, end: 20130819
  4. COLACE [Concomitant]
     Route: 065
  5. SENNA [Concomitant]
     Dosage: 2 TABLET, 1 IN 1 DAY)
     Route: 065
  6. LACTULOSE [Concomitant]
     Indication: CONSTIPATION
     Route: 065
  7. VIAGRA [Concomitant]
     Route: 065
  8. PROCHLORPERAZINE MALEATE [Concomitant]
     Indication: NAUSEA
     Dosage: Q4-6H - FREQUENCY
     Route: 048
  9. ZOMETA [Concomitant]
     Dosage: DOSE - 4MG/5 ML
     Route: 065
  10. TRIPTORELIN EMBONATE [Concomitant]
     Dosage: FREQUENCY - ONE IN THREE MONTHS
     Route: 065
  11. PREDNISONE [Concomitant]
     Route: 048
  12. PROTONIX [Concomitant]
     Route: 048
  13. CALCIUM [Concomitant]
     Route: 048
  14. VITAMIN D [Concomitant]
     Route: 065
  15. ISONIAZID [Concomitant]
     Route: 048
  16. FLEXERIL [Concomitant]
     Route: 048
  17. OXYCODONE [Concomitant]
     Indication: PAIN
     Dosage: Q6H, 2 TABLETS, AS REQUIRED.
     Route: 065
  18. OXYCODONE [Concomitant]
     Indication: PAIN
     Route: 048
  19. MIRTAZAPINE [Concomitant]
     Route: 048

REACTIONS (5)
  - Systemic inflammatory response syndrome [Recovered/Resolved]
  - Pneumonia [Recovered/Resolved]
  - Dehydration [Recovered/Resolved]
  - Nausea [Recovered/Resolved]
  - Vomiting [Recovered/Resolved]
